FAERS Safety Report 19212301 (Version 3)
Quarter: 2021Q3

REPORT INFORMATION
  Report Type: Spontaneous
  Country: US (occurrence: US)
  Receive Date: 20210504
  Receipt Date: 20210824
  Transmission Date: 20211014
  Serious: No
  Sender: FDA-Public Use
  Company Number: US-JNJFOC-20210456772

PATIENT
  Age: 58 Year
  Sex: Female
  Weight: 53.57 kg

DRUGS (6)
  1. ZALEPLON. [Concomitant]
     Active Substance: ZALEPLON
     Indication: PRODUCT USED FOR UNKNOWN INDICATION
  2. CLONAZEPAM. [Concomitant]
     Active Substance: CLONAZEPAM
     Indication: PRODUCT USED FOR UNKNOWN INDICATION
  3. BELSOMRA [Concomitant]
     Active Substance: SUVOREXANT
     Indication: PRODUCT USED FOR UNKNOWN INDICATION
  4. SPRAVATO [Suspect]
     Active Substance: ESKETAMINE
     Indication: DEPRESSION
     Route: 045
     Dates: start: 201912
  5. DEPAKOTE [Concomitant]
     Active Substance: DIVALPROEX SODIUM
     Indication: PRODUCT USED FOR UNKNOWN INDICATION
  6. GABAPENTIN. [Concomitant]
     Active Substance: GABAPENTIN
     Indication: PRODUCT USED FOR UNKNOWN INDICATION

REACTIONS (1)
  - Therapeutic product effect decreased [Unknown]
